FAERS Safety Report 24570628 (Version 2)
Quarter: 2024Q4

REPORT INFORMATION
  Report Type: Spontaneous
  Country: BR (occurrence: BR)
  Receive Date: 20241031
  Receipt Date: 20241226
  Transmission Date: 20250115
  Serious: Yes (Hospitalization, Other)
  Sender: NOVARTIS
  Company Number: BR-002147023-NVSC2024BR208904

PATIENT
  Age: 37 Year
  Sex: Male
  Weight: 113 kg

DRUGS (5)
  1. TASIGNA [Suspect]
     Active Substance: NILOTINIB
     Indication: Chronic myeloid leukaemia
     Dosage: 4 DOSAGE FORM, QD (112 GEL CAPSULE)
     Route: 065
     Dates: start: 202303
  2. KETOPROFEN [Concomitant]
     Active Substance: KETOPROFEN
     Indication: Product used for unknown indication
     Dosage: UNK
     Route: 065
  3. IBUPROFEN [Concomitant]
     Active Substance: IBUPROFEN
     Indication: Product used for unknown indication
     Dosage: UNK
     Route: 065
  4. TORSILAX [Concomitant]
     Active Substance: ACETAMINOPHEN\CAFFEINE\CARISOPRODOL\DICLOFENAC
     Indication: Product used for unknown indication
     Dosage: UNK
     Route: 065
  5. CIPROFIBRATE [Concomitant]
     Active Substance: CIPROFIBRATE
     Indication: Product used for unknown indication
     Dosage: UNK
     Route: 065

REACTIONS (13)
  - Pancreatitis [Recovering/Resolving]
  - Hallucination [Unknown]
  - Schizophrenia [Unknown]
  - Blindness transient [Unknown]
  - Visual impairment [Not Recovered/Not Resolved]
  - Pain in extremity [Unknown]
  - Atrophy [Unknown]
  - Asthenia [Unknown]
  - Fibromyalgia [Unknown]
  - Memory impairment [Unknown]
  - Aphasia [Unknown]
  - Depression [Unknown]
  - Migraine [Unknown]

NARRATIVE: CASE EVENT DATE: 20241212
